FAERS Safety Report 21739746 (Version 1)
Quarter: 2022Q4

REPORT INFORMATION
  Report Type: Spontaneous
  Country: US (occurrence: None)
  Receive Date: 20221215
  Receipt Date: 20221215
  Transmission Date: 20230113
  Serious: No
  Sender: FDA-Public Use
  Company Number: None

PATIENT
  Sex: Male

DRUGS (2)
  1. REMODULIN [Suspect]
     Active Substance: TREPROSTINIL
     Dosage: OTHER QUANTITY : 56.26NG/KG/MIN?OTHER FREQUENCY : CONTINUOUS?
     Dates: start: 202205
  2. DEVICE [Suspect]
     Active Substance: DEVICE
     Indication: Pulmonary arterial hypertension
     Dates: start: 202205

REACTIONS (4)
  - Recalled product [None]
  - Recalled product administered [None]
  - Headache [None]
  - Nausea [None]
